FAERS Safety Report 7474616-2 (Version None)
Quarter: 2011Q2

REPORT INFORMATION
  Report Type: 
  Country: None (occurrence: None)
  Receive Date: 20110503
  Receipt Date: 20110420
  Transmission Date: 20111010
  Serious: Yes (Hospitalization)
  Sender: FDA-Public Use
  Company Number: 020582

PATIENT
  Sex: Male
  Weight: 69.4 kg

DRUGS (7)
  1. TONOCALTIN [Concomitant]
  2. FUROSEMIDE [Concomitant]
  3. CALCIUM W/VITAMIN C/VITAMIN D [Concomitant]
  4. URBASON [Concomitant]
  5. CELEBREX [Concomitant]
  6. CIMZIA [Suspect]
     Indication: RHEUMATOID ARTHRITIS
     Dosage: 400 MG, 1X/2 WEEKS, AT WEEK 0, 2 AND 4 SUBCUTANEOUS; 200MG 1X/2 WEEKS, AT WEEK 6, 8 AND 10 SUBCUTANE
     Route: 058
  7. ARAVA [Concomitant]

REACTIONS (2)
  - FALL [None]
  - SUBDURAL HAEMATOMA [None]
